FAERS Safety Report 5413892-4 (Version None)
Quarter: 2007Q3

REPORT INFORMATION
  Report Type: 
  Country: None (occurrence: None)
  Receive Date: 20070814
  Receipt Date: 20000316
  Transmission Date: 20080115
  Serious: No
  Sender: FDA-Public Use
  Company Number: CA-ASTRAZENECA-2000UW00910

PATIENT
  Age: 32 Year

DRUGS (7)
  1. SEROQUEL [Suspect]
     Route: 048
  2. VALPROIC ACID [Suspect]
     Route: 048
  3. CISAPRIDE [Concomitant]
  4. CLOZARIL [Concomitant]
     Route: 048
  5. HALDOL [Concomitant]
     Route: 048
  6. LOSEC [Concomitant]
     Route: 048
  7. PAXIL [Concomitant]
     Route: 048

REACTIONS (1)
  - PANCREATITIS NECROTISING [None]
